FAERS Safety Report 14109982 (Version 1)
Quarter: 2017Q4

REPORT INFORMATION
  Report Type: Spontaneous
  Country: US (occurrence: US)
  Receive Date: 20171020
  Receipt Date: 20171020
  Transmission Date: 20180321
  Serious: No
  Sender: FDA-Public Use
  Company Number: US-TEVA-353914USA

PATIENT
  Sex: Female

DRUGS (1)
  1. TRI-PREVIFEM [Suspect]
     Active Substance: ETHINYL ESTRADIOL\NORGESTIMATE

REACTIONS (3)
  - Product packaging issue [Unknown]
  - Pregnancy on oral contraceptive [Unknown]
  - Expired product administered [Unknown]

NARRATIVE: CASE EVENT DATE: 201206
